FAERS Safety Report 15152507 (Version 1)
Quarter: 2018Q3

REPORT INFORMATION
  Report Type: Spontaneous
  Country: US (occurrence: US)
  Receive Date: 20180717
  Receipt Date: 20180717
  Transmission Date: 20181010
  Serious: Yes (Hospitalization)
  Sender: FDA-Public Use
  Company Number: US-TEVA-2018-US-926148

PATIENT
  Age: 82 Year
  Sex: Male

DRUGS (1)
  1. SYNRIBO [Suspect]
     Active Substance: OMACETAXINE MEPESUCCINATE
     Indication: CHRONIC MYELOID LEUKAEMIA
     Dosage: 2.5 MG/0.71 ML FOR 14 DAYS.
     Dates: start: 20180703

REACTIONS (3)
  - Drug dose omission [Unknown]
  - Expired product administered [Unknown]
  - Transfusion [Unknown]

NARRATIVE: CASE EVENT DATE: 201807
